FAERS Safety Report 16475405 (Version 7)
Quarter: 2022Q2

REPORT INFORMATION
  Report Type: Report from Study
  Country: CO (occurrence: CO)
  Receive Date: 20190625
  Receipt Date: 20220601
  Transmission Date: 20220721
  Serious: Yes (Other)
  Sender: FDA-Public Use
  Company Number: PHHY2019CO145017

PATIENT
  Age: 54 Year
  Sex: Female
  Weight: 55 kg

DRUGS (6)
  1. COSENTYX [Suspect]
     Active Substance: SECUKINUMAB
     Indication: Psoriasis
     Dosage: 300 MG, QW 0-4 FOLLOWED BY 300 MG Q4W FOR 2 MONTHS
     Route: 058
     Dates: start: 201806
  2. COSENTYX [Suspect]
     Active Substance: SECUKINUMAB
     Indication: Psoriatic arthropathy
     Dosage: 300 MG, QMO
     Route: 058
     Dates: start: 20180810, end: 20181206
  3. COSENTYX [Suspect]
     Active Substance: SECUKINUMAB
     Dosage: UNK
     Route: 065
     Dates: start: 20181206
  4. COSENTYX [Suspect]
     Active Substance: SECUKINUMAB
     Dosage: 300 MG, QMO
     Route: 058
  5. PREGABALIN [Suspect]
     Active Substance: PREGABALIN
     Indication: Arthralgia
     Dosage: 150 MG, Q12H
     Route: 065
     Dates: start: 2010
  6. PREGABALIN [Suspect]
     Active Substance: PREGABALIN
     Indication: Pain

REACTIONS (31)
  - Syncope [Not Recovered/Not Resolved]
  - Influenza [Recovering/Resolving]
  - Nasal congestion [Recovering/Resolving]
  - Pallor [Not Recovered/Not Resolved]
  - Spinal pain [Not Recovered/Not Resolved]
  - Dizziness [Not Recovered/Not Resolved]
  - Hypertension [Not Recovered/Not Resolved]
  - Arthralgia [Not Recovered/Not Resolved]
  - Laryngitis [Recovering/Resolving]
  - Headache [Unknown]
  - Eyelids pruritus [Unknown]
  - Bronchitis [Unknown]
  - Cough [Recovering/Resolving]
  - Asthenopia [Unknown]
  - Weight decreased [Not Recovered/Not Resolved]
  - Depressed mood [Unknown]
  - Osteoporosis [Unknown]
  - Feeling abnormal [Recovering/Resolving]
  - Hypersensitivity [Unknown]
  - Boredom [Unknown]
  - Urticaria [Unknown]
  - Pain [Not Recovered/Not Resolved]
  - Pain in extremity [Unknown]
  - Condition aggravated [Unknown]
  - Skin discolouration [Unknown]
  - Inflammation [Not Recovered/Not Resolved]
  - Psoriasis [Unknown]
  - Pruritus [Not Recovered/Not Resolved]
  - Skin plaque [Not Recovered/Not Resolved]
  - Rash [Unknown]
  - Product dose omission issue [Unknown]

NARRATIVE: CASE EVENT DATE: 20190401
